FAERS Safety Report 11916523 (Version 1)
Quarter: 2016Q1

REPORT INFORMATION
  Report Type: Spontaneous
  Country: CN (occurrence: CN)
  Receive Date: 20160114
  Receipt Date: 20160114
  Transmission Date: 20160526
  Serious: Yes (Other)
  Sender: FDA-Public Use
  Company Number: PHHY2016CN002187

PATIENT
  Age: 48 Year
  Sex: Male

DRUGS (2)
  1. METHYLPREDNISOLONE. [Suspect]
     Active Substance: METHYLPREDNISOLONE
     Indication: DEMYELINATION
     Dosage: 500 MG, QD
     Route: 042
  2. METHOTREXATE [Suspect]
     Active Substance: METHOTREXATE
     Indication: B-CELL LYMPHOMA
     Dosage: 4 G/M2, 3 WEEKLY INTERVAL
     Route: 065

REACTIONS (9)
  - Memory impairment [Recovering/Resolving]
  - Disease progression [Recovering/Resolving]
  - Urinary incontinence [Unknown]
  - Anal incontinence [Unknown]
  - Aphasia [Recovering/Resolving]
  - Vomiting [Recovered/Resolved]
  - Nausea [Recovered/Resolved]
  - Deafness [Recovering/Resolving]
  - Demyelination [Recovering/Resolving]
